FAERS Safety Report 18968547 (Version 1)
Quarter: 2021Q1

REPORT INFORMATION
  Report Type: Spontaneous
  Country: US (occurrence: US)
  Receive Date: 20210304
  Receipt Date: 20210304
  Transmission Date: 20210420
  Serious: No
  Sender: FDA-Public Use
  Company Number: US-ASTRAZENECA-2021A054102

PATIENT
  Sex: Female
  Weight: 93.4 kg

DRUGS (2)
  1. CALQUENCE [Suspect]
     Active Substance: ACALABRUTINIB
     Indication: LYMPHOMA
     Route: 048
     Dates: start: 20210203
  2. CALQUENCE [Suspect]
     Active Substance: ACALABRUTINIB
     Indication: CHRONIC LYMPHOCYTIC LEUKAEMIA
     Route: 048
     Dates: start: 20210203

REACTIONS (5)
  - Depression [Unknown]
  - Intentional product misuse [Unknown]
  - Choking [Unknown]
  - Retching [Unknown]
  - Wrong technique in product usage process [Unknown]
